FAERS Safety Report 24318175 (Version 2)
Quarter: 2024Q4

REPORT INFORMATION
  Report Type: Spontaneous
  Country: US (occurrence: US)
  Receive Date: 20240913
  Receipt Date: 20241110
  Transmission Date: 20250115
  Serious: No
  Sender: SANOFI AVENTIS
  Company Number: US-SA-2024SA263425

PATIENT
  Age: 32 Year
  Sex: Male

DRUGS (1)
  1. DUPIXENT [Suspect]
     Active Substance: DUPILUMAB
     Indication: Eosinophilic oesophagitis
     Dosage: 300 MG, QW
     Route: 058
     Dates: start: 202405

REACTIONS (5)
  - Sunburn [Unknown]
  - Pain [Unknown]
  - Productive cough [Unknown]
  - Condition aggravated [Unknown]
  - Secretion discharge [Unknown]

NARRATIVE: CASE EVENT DATE: 20240101
